FAERS Safety Report 5296443-7 (Version None)
Quarter: 2007Q2

REPORT INFORMATION
  Report Type: 
  Country: None (occurrence: None)
  Receive Date: 20070413
  Receipt Date: 20070403
  Transmission Date: 20071010
  Serious: Yes (Hospitalization)
  Sender: FDA-Public Use
  Company Number: PHHO2005US18747

PATIENT
  Age: 63 Year
  Sex: Female
  Weight: 63.1 kg

DRUGS (22)
  1. LOTREL [Suspect]
     Indication: HYPERTENSION
     Dosage: LEVEL 1
     Route: 048
     Dates: start: 20040416, end: 20040429
  2. LOTREL [Suspect]
     Dosage: LEVEL 2
     Route: 048
     Dates: start: 20040430, end: 20051117
  3. LIPITOR [Concomitant]
  4. AMITRIPTYLINE HCL [Concomitant]
  5. OXYTROL [Concomitant]
  6. OYSTER SHELL CALCIUM [Concomitant]
  7. ASPIRIN [Concomitant]
  8. VITAMIN CAP [Concomitant]
  9. NEXIUM [Concomitant]
  10. RHINOCORT [Concomitant]
  11. SEREVENT [Concomitant]
  12. SINGULAIR [Concomitant]
  13. MAGNESIUM OXIDE [Concomitant]
  14. GLYBURIDE [Concomitant]
  15. PULMICORT [Concomitant]
  16. ZYRTEC [Concomitant]
  17. METFORMIN [Concomitant]
  18. ALBUTEROL [Concomitant]
  19. IMDUR [Suspect]
     Indication: CORONARY ARTERY DISEASE
     Dosage: 30 MG, QD
     Route: 048
     Dates: start: 20020115, end: 20051117
  20. NITROGLYCERIN [Suspect]
  21. PLAVIX [Concomitant]
     Indication: CORONARY ARTERY DISEASE
     Dosage: 75 MG, QD
     Route: 048
     Dates: start: 20020115
  22. NEUROTON [Suspect]
     Indication: RESTLESS LEGS SYNDROME
     Dosage: 600 MG, TID
     Route: 048
     Dates: end: 20051117

REACTIONS (16)
  - ACUTE PRERENAL FAILURE [None]
  - BLOOD CREATININE INCREASED [None]
  - CHILLS [None]
  - CONFUSIONAL STATE [None]
  - DIZZINESS [None]
  - DRUG INTERACTION [None]
  - ELECTROCARDIOGRAM ST-T CHANGE [None]
  - ENCEPHALOPATHY [None]
  - HYPERHIDROSIS [None]
  - HYPERTENSION [None]
  - HYPOTENSION [None]
  - HYPOVOLAEMIA [None]
  - MENTAL STATUS CHANGES [None]
  - MICROANGIOPATHY [None]
  - PHARYNGOLARYNGEAL PAIN [None]
  - WHITE BLOOD CELL COUNT INCREASED [None]
